FAERS Safety Report 6878466-7 (Version None)
Quarter: 2010Q3

REPORT INFORMATION
  Report Type: 
  Country: None (occurrence: None)
  Receive Date: 20100728
  Receipt Date: 20100723
  Transmission Date: 20110219
  Serious: Yes (Other)
  Sender: FDA-Public Use
  Company Number: JP-MERCK-1007USA03134

PATIENT
  Age: 79 Year
  Sex: Female

DRUGS (4)
  1. JANUVIA [Suspect]
     Indication: TYPE 2 DIABETES MELLITUS
     Route: 048
     Dates: start: 20100120, end: 20100526
  2. COZAAR [Concomitant]
     Route: 048
  3. LIPITOR [Concomitant]
     Route: 065
  4. AMARYL [Concomitant]
     Route: 065

REACTIONS (1)
  - SUICIDAL IDEATION [None]
